FAERS Safety Report 8552844-2 (Version None)
Quarter: 2012Q2

REPORT INFORMATION
  Report Type: 
  Country: None (occurrence: None)
  Receive Date: 20120416
  Receipt Date: 20100112
  Transmission Date: 20120825
  Serious: Yes (Hospitalization)
  Sender: FDA-Public Use
  Company Number: PHHY2010US02020

PATIENT
  Age: 76 Year
  Sex: Male

DRUGS (3)
  1. EXELON [Suspect]
     Indication: DEMENTIA ALZHEIMER'S TYPE
     Dosage: 4.6 MG ; 9.5 MG
  2. NORVASC [Concomitant]
  3. RISPERIDONE [Concomitant]

REACTIONS (2)
  - INCONTINENCE [None]
  - DIARRHOEA [None]
